FAERS Safety Report 13965557 (Version 1)
Quarter: 2017Q3

REPORT INFORMATION
  Report Type: Spontaneous
  Country: US (occurrence: US)
  Receive Date: 20170913
  Receipt Date: 20170913
  Transmission Date: 20171128
  Serious: No
  Sender: FDA-Public Use
  Company Number: US-ASTRAZENECA-2017SE91888

PATIENT
  Sex: Female

DRUGS (4)
  1. SELENIUM [Concomitant]
     Active Substance: SELENIUM
     Route: 048
  2. RISEDRONATE SODIUM. [Concomitant]
     Active Substance: RISEDRONATE SODIUM
     Route: 048
  3. PRILOSEC [Suspect]
     Active Substance: OMEPRAZOLE MAGNESIUM
     Route: 048
  4. ARIMIDEX [Suspect]
     Active Substance: ANASTROZOLE
     Indication: BREAST CANCER FEMALE
     Route: 048

REACTIONS (4)
  - Insomnia [Unknown]
  - Arthralgia [Unknown]
  - Headache [Unknown]
  - Extra dose administered [Unknown]
